FAERS Safety Report 6222384-4 (Version None)
Quarter: 2009Q2

REPORT INFORMATION
  Report Type: 
  Country: None (occurrence: None)
  Receive Date: 20090608
  Receipt Date: 20090525
  Transmission Date: 20091009
  Serious: Yes (Hospitalization)
  Sender: FDA-Public Use
  Company Number: FR-GENENTECH-282360

PATIENT
  Sex: Male

DRUGS (13)
  1. MABTHERA [Suspect]
     Indication: NON-HODGKIN'S LYMPHOMA
     Dosage: 780 MG, UNK
     Route: 042
     Dates: start: 20090204, end: 20090204
  2. BACTRIM [Suspect]
     Indication: NON-HODGKIN'S LYMPHOMA
     Dosage: UNK
     Route: 048
  3. METHOTREXATE [Suspect]
     Indication: NON-HODGKIN'S LYMPHOMA
     Dosage: 4.2 G, QD
     Route: 042
     Dates: start: 20090219
  4. METHOTREXATE [Suspect]
     Dosage: 15 MG, QD
     Route: 037
     Dates: start: 20090204
  5. ARACYTINE [Suspect]
     Indication: DRUG USE FOR UNKNOWN INDICATION
     Dosage: 40 MG, QD
     Route: 037
     Dates: start: 20090204
  6. VEPESID [Suspect]
     Indication: DRUG USE FOR UNKNOWN INDICATION
     Dosage: 210 MG, QD
     Route: 042
     Dates: start: 20090205
  7. BICNU [Suspect]
     Indication: DRUG USE FOR UNKNOWN INDICATION
     Dosage: 210 MG, QD
     Route: 042
     Dates: start: 20090206
  8. MOPRAL [Suspect]
     Indication: DRUG USE FOR UNKNOWN INDICATION
     Dosage: 20 MG, QD
     Route: 048
     Dates: start: 20090208, end: 20090317
  9. DEPO-MEDROL [Concomitant]
     Indication: DRUG USE FOR UNKNOWN INDICATION
     Dosage: UNK
     Dates: start: 20090204, end: 20090204
  10. SOLU-MEDROL [Concomitant]
     Indication: DRUG USE FOR UNKNOWN INDICATION
     Dosage: UNK
     Dates: start: 20090204
  11. SOLU-MEDROL [Concomitant]
     Dosage: UNK
     Dates: start: 20090208
  12. TOPALGIC [Concomitant]
     Indication: DRUG USE FOR UNKNOWN INDICATION
  13. DI-ANTALVIC [Concomitant]
     Indication: DRUG USE FOR UNKNOWN INDICATION

REACTIONS (1)
  - AGRANULOCYTOSIS [None]
